FAERS Safety Report 6075611-0 (Version None)
Quarter: 2009Q1

REPORT INFORMATION
  Report Type: 
  Country: None (occurrence: None)
  Receive Date: 20090212
  Receipt Date: 20090202
  Transmission Date: 20090719
  Serious: Yes (Hospitalization)
  Sender: FDA-Public Use
  Company Number: FR-PFIZER INC-2009165122

PATIENT

DRUGS (6)
  1. ALDACTONE [Suspect]
     Dosage: 1.5 DF, WEEKLY
     Route: 048
  2. KENZEN [Suspect]
     Dosage: 0.5 DF, 1X/DAY
     Route: 048
  3. CARDENSIEL [Suspect]
     Dosage: 1.25 MG, 1X/DAY
     Route: 048
  4. CRESTOR [Suspect]
     Dosage: 5 MG, 1X/DAY
     Route: 048
  5. PREVISCAN [Suspect]
     Dosage: 1 DF, 1X/DAY
     Route: 048
     Dates: start: 20040101
  6. DOLIPRANE [Suspect]
     Dosage: 1 G, SINGLE
     Route: 048
     Dates: start: 20080923, end: 20080923

REACTIONS (1)
  - HAEMATURIA [None]
